FAERS Safety Report 23172666 (Version 1)
Quarter: 2023Q4

REPORT INFORMATION
  Report Type: Spontaneous
  Country: JP (occurrence: JP)
  Receive Date: 20231110
  Receipt Date: 20231110
  Transmission Date: 20240110
  Serious: Yes (Death, Hospitalization)
  Sender: FDA-Public Use
  Company Number: JP-BAYER-2023A149014

PATIENT
  Age: 9 Decade

DRUGS (2)
  1. ADEMPAS [Suspect]
     Active Substance: RIOCIGUAT
     Route: 048
  2. ADEMPAS [Suspect]
     Active Substance: RIOCIGUAT
     Route: 048

REACTIONS (3)
  - Renal disorder [Fatal]
  - Dehydration [None]
  - Physical deconditioning [None]
